FAERS Safety Report 7032012-6 (Version None)
Quarter: 2010Q4

REPORT INFORMATION
  Report Type: 
  Country: None (occurrence: None)
  Receive Date: 20101005
  Receipt Date: 20100924
  Transmission Date: 20110411
  Serious: Yes (Other)
  Sender: FDA-Public Use
  Company Number: 2009315418

PATIENT

DRUGS (2)
  1. FRAGMIN [Suspect]
     Dosage: 5000 IU, 1X/DAY, TRANSPLACENTAL
     Route: 064
     Dates: start: 20091101, end: 20091124
  2. ASPIRIN [Concomitant]

REACTIONS (3)
  - ANAEMIA NEONATAL [None]
  - MATERNAL DRUGS AFFECTING FOETUS [None]
  - PREMATURE BABY [None]
